FAERS Safety Report 8989950 (Version 2)
Quarter: 2013Q1

REPORT INFORMATION
  Report Type: Spontaneous
  Country: SK (occurrence: SK)
  Receive Date: 20121228
  Receipt Date: 20130208
  Transmission Date: 20140127
  Serious: Yes (Hospitalization)
  Sender: FDA-Public Use
  Company Number: SK-GLAXOSMITHKLINE-B0855521A

PATIENT
  Sex: Female

DRUGS (1)
  1. TROBALT [Suspect]
     Indication: EPILEPSY
     Dosage: 1000MG PER DAY
     Route: 048

REACTIONS (2)
  - Convulsion [Unknown]
  - Mental disorder [Unknown]
